FAERS Safety Report 7961025-2 (Version None)
Quarter: 2011Q4

REPORT INFORMATION
  Report Type: 
  Country: None (occurrence: None)
  Receive Date: 20111202
  Receipt Date: 20111118
  Transmission Date: 20120403
  Serious: Yes (Hospitalization, Other)
  Sender: FDA-Public Use
  Company Number: 2011MA016893

PATIENT
  Age: 50 Year
  Sex: Male

DRUGS (7)
  1. DIAZEPAM [Concomitant]
  2. CITALOPRAM HYDROBROMIDE [Suspect]
     Indication: DEPRESSION
     Dosage: 40 MG, QD;
     Dates: start: 20070101, end: 20080401
  3. EFFEXOR [Suspect]
     Indication: DEPRESSION
     Dosage: 37.5 MG; QD;
     Dates: start: 20080421, end: 20080605
  4. FLUOXETINE HCL [Concomitant]
  5. IMIPRAMINE [Concomitant]
  6. EFFEXOR XR [Suspect]
     Indication: ANXIETY
     Dosage: 225 MG; QD;
     Dates: start: 20080606, end: 20081121
  7. OLANZAPINE [Concomitant]

REACTIONS (21)
  - APATHY [None]
  - APHASIA [None]
  - NEURODEGENERATIVE DISORDER [None]
  - DEMENTIA ALZHEIMER'S TYPE [None]
  - BALANCE DISORDER [None]
  - CLUMSINESS [None]
  - MUSCLE SPASMS [None]
  - CEREBELLAR SYNDROME [None]
  - WEIGHT DECREASED [None]
  - BULBAR PALSY [None]
  - ASTHENIA [None]
  - ACTIVITIES OF DAILY LIVING IMPAIRED [None]
  - GAIT DISTURBANCE [None]
  - AFFECT LABILITY [None]
  - SALIVARY HYPERSECRETION [None]
  - DYSPHAGIA [None]
  - SPEECH DISORDER [None]
  - DYSARTHRIA [None]
  - FALL [None]
  - COORDINATION ABNORMAL [None]
  - EYE MOVEMENT DISORDER [None]
